FAERS Safety Report 15833594 (Version 1)
Quarter: 2019Q1

REPORT INFORMATION
  Report Type: Report from Study
  Country: FI (occurrence: FI)
  Receive Date: 20190116
  Receipt Date: 20190116
  Transmission Date: 20190417
  Serious: Yes (Hospitalization, Other)
  Sender: FDA-Public Use
  Company Number: FI-MYLANLABS-2019M1003402

PATIENT
  Sex: Female

DRUGS (1)
  1. LEPONEX [Suspect]
     Active Substance: CLOZAPINE
     Indication: PRODUCT USED FOR UNKNOWN INDICATION
     Dosage: UNK

REACTIONS (7)
  - Delusional disorder, unspecified type [Unknown]
  - Antipsychotic drug level increased [Unknown]
  - Pleural effusion [Unknown]
  - Aortic valve incompetence [Unknown]
  - Eating disorder [Unknown]
  - Lymphoma [Unknown]
  - Malnutrition [Unknown]

NARRATIVE: CASE EVENT DATE: 201901
